FAERS Safety Report 18898731 (Version 1)
Quarter: 2021Q1

REPORT INFORMATION
  Report Type: Spontaneous
  Country: US (occurrence: US)
  Receive Date: 20210212
  Receipt Date: 20210212
  Transmission Date: 20210420
  Serious: No
  Sender: FDA-Public Use
  Company Number: None

PATIENT
  Age: 59 Year
  Sex: Male

DRUGS (1)
  1. RIBAVIRIN CAP 200MG [Suspect]
     Active Substance: RIBAVIRIN
     Indication: HEPATITIS C
     Route: 048
     Dates: start: 20210118

REACTIONS (4)
  - Diarrhoea [None]
  - Hypersensitivity [None]
  - Gallbladder disorder [None]
  - Nausea [None]

NARRATIVE: CASE EVENT DATE: 20210212
